FAERS Safety Report 12542364 (Version 1)
Quarter: 2016Q3

REPORT INFORMATION
  Report Type: Report from Study
  Country: US (occurrence: US)
  Receive Date: 20160708
  Receipt Date: 20160708
  Transmission Date: 20161109
  Serious: Yes (Other)
  Sender: FDA-Public Use
  Company Number: US-BIOGEN-2016BI00261290

PATIENT
  Sex: Female

DRUGS (1)
  1. TYSABRI [Suspect]
     Active Substance: NATALIZUMAB
     Indication: CROHN^S DISEASE
     Dosage: INFUSED OVER 1 HOUR
     Route: 042
     Dates: start: 20150924, end: 20160203

REACTIONS (2)
  - Opportunistic infection [Not Recovered/Not Resolved]
  - Crohn^s disease [Unknown]
